FAERS Safety Report 13545388 (Version 1)
Quarter: 2017Q2

REPORT INFORMATION
  Report Type: Spontaneous
  Country: US (occurrence: US)
  Receive Date: 20170515
  Receipt Date: 20170515
  Transmission Date: 20170830
  Serious: No
  Sender: FDA-Public Use
  Company Number: US-009507513-1704USA012646

PATIENT
  Sex: Female

DRUGS (1)
  1. DULERA [Suspect]
     Active Substance: FORMOTEROL FUMARATE DIHYDRATE\MOMETASONE FUROATE
     Indication: ASTHMA
     Dosage: 1 DF, QD; ROUTE: ORAL INHALATION
     Route: 055

REACTIONS (8)
  - Dyspnoea [Unknown]
  - Rosacea [Not Recovered/Not Resolved]
  - Intentional product misuse [Unknown]
  - Drug dose omission [Unknown]
  - Product quality issue [Unknown]
  - Wheezing [Unknown]
  - Candida infection [Not Recovered/Not Resolved]
  - Cough [Unknown]
